FAERS Safety Report 7441861-1 (Version None)
Quarter: 2011Q2

REPORT INFORMATION
  Report Type: 
  Country: None (occurrence: None)
  Receive Date: 20110428
  Receipt Date: 20110419
  Transmission Date: 20111010
  Serious: No
  Sender: FDA-Public Use
  Company Number: US-ELI_LILLY_AND_COMPANY-US201104006275

PATIENT
  Sex: Male

DRUGS (2)
  1. ALCOHOL [Interacting]
  2. CYMBALTA [Suspect]
     Indication: DEPRESSION
     Dosage: 60 MG, UNK

REACTIONS (2)
  - HEPATIC ENZYME INCREASED [None]
  - DRUG INTERACTION [None]
